FAERS Safety Report 12406764 (Version 1)
Quarter: 2016Q2

REPORT INFORMATION
  Report Type: Spontaneous
  Country: US (occurrence: None)
  Receive Date: 20160525
  Receipt Date: 20160525
  Transmission Date: 20160815
  Serious: Yes (Hospitalization)
  Sender: FDA-Public Use
  Company Number: None

PATIENT
  Age: 75 Year
  Sex: Female
  Weight: 86.18 kg

DRUGS (1)
  1. BYDUREON [Suspect]
     Active Substance: EXENATIDE
     Indication: TYPE 2 DIABETES MELLITUS
     Route: 058
     Dates: start: 20160511

REACTIONS (7)
  - Diarrhoea [None]
  - Injection site swelling [None]
  - Injection site pruritus [None]
  - Pain [None]
  - Injection site erythema [None]
  - Headache [None]
  - Injection site pain [None]

NARRATIVE: CASE EVENT DATE: 20160511
